FAERS Safety Report 8602135-6 (Version None)
Quarter: 2012Q3

REPORT INFORMATION
  Report Type: 
  Country: None (occurrence: None)
  Receive Date: 20120817
  Receipt Date: 20120810
  Transmission Date: 20120928
  Serious: Yes (Hospitalization)
  Sender: FDA-Public Use
  Company Number: ES-B.I. PHARMACEUTICALS,INC./RIDGEFIELD-2012-ES-00321ES

PATIENT
  Age: 71 Year
  Sex: Female

DRUGS (4)
  1. PRADAXA [Suspect]
     Indication: ATRIAL FIBRILLATION
     Dosage: 220 MG
     Route: 048
     Dates: start: 20120227, end: 20120408
  2. AMOXICILLIN AND CLAVULANATE POTASSIUM [Suspect]
     Dosage: DAILY DOSE: 3 FIXED DOSE DAILY
     Route: 048
     Dates: start: 20120308, end: 20120316
  3. TENORETIC [Concomitant]
     Indication: HYPERTENSION
     Dosage: 100 MG
     Route: 048
  4. PRAVASTATINA [Concomitant]
     Indication: HYPERLIPIDAEMIA
     Dosage: 40 MG
     Route: 048
     Dates: start: 20110101

REACTIONS (3)
  - CHOLURIA [None]
  - CYTOLYTIC HEPATITIS [None]
  - HEPATIC ENZYME INCREASED [None]
